FAERS Safety Report 25298582 (Version 1)
Quarter: 2025Q2

REPORT INFORMATION
  Report Type: Spontaneous
  Country: JP (occurrence: JP)
  Receive Date: 20250512
  Receipt Date: 20250512
  Transmission Date: 20250717
  Serious: Yes (Hospitalization)
  Sender: AMGEN
  Company Number: JP-BEH-2025204303

PATIENT

DRUGS (1)
  1. TAVNEOS [Suspect]
     Active Substance: AVACOPAN
     Indication: Anti-neutrophil cytoplasmic antibody positive vasculitis
     Route: 048

REACTIONS (5)
  - Hospitalisation [Unknown]
  - Hepatic function abnormal [Unknown]
  - Drug ineffective [Unknown]
  - Underdose [Unknown]
  - Underdose [Unknown]
